FAERS Safety Report 7470548-4 (Version None)
Quarter: 2011Q2

REPORT INFORMATION
  Report Type: 
  Country: None (occurrence: None)
  Receive Date: 20110510
  Receipt Date: 20110422
  Transmission Date: 20111010
  Serious: No
  Sender: FDA-Public Use
  Company Number: US-B.I. PHARMACEUTICALS,INC./RIDGEFIELD-2011-BP-07516BP

PATIENT
  Sex: Female

DRUGS (10)
  1. VERAPAMIL [Concomitant]
     Dosage: 120 MG
  2. BISOPROLOL [Concomitant]
     Dosage: 5 MG
  3. CALCIUM CITRATE [Concomitant]
  4. VITAMIN D [Concomitant]
     Dosage: 2000 MG
  5. FISH OIL [Concomitant]
     Dosage: 1000 MG
  6. PRADAXA [Suspect]
     Indication: ATRIAL FIBRILLATION
     Dosage: 300 MG
     Route: 048
     Dates: start: 20110201
  7. ALENDRONATE SODIUM [Concomitant]
  8. SIMVASTATIN [Concomitant]
     Dosage: 20 MG
  9. ARIMIDEX [Concomitant]
     Dosage: 1 MG
  10. LEVOXYL [Concomitant]
     Dosage: 112 MCG

REACTIONS (1)
  - ERUCTATION [None]
